FAERS Safety Report 5750974-1 (Version None)
Quarter: 2008Q2

REPORT INFORMATION
  Report Type: 
  Country: None (occurrence: None)
  Receive Date: 20080528
  Receipt Date: 20080519
  Transmission Date: 20081010
  Serious: Yes (Other)
  Sender: FDA-Public Use
  Company Number: JP-ASTRAZENECA-2008AP03686

PATIENT
  Sex: Female

DRUGS (3)
  1. ARIMIDEX [Suspect]
     Indication: BREAST CANCER
     Route: 048
  2. ENDOXAN [Suspect]
     Dosage: DOSE UNKNOWN
     Route: 065
  3. FURTULON [Suspect]
     Dosage: DOSE UNKNOWN
     Route: 048

REACTIONS (1)
  - THROMBOCYTOPENIA [None]
